FAERS Safety Report 24936932 (Version 2)
Quarter: 2025Q3

REPORT INFORMATION
  Report Type: Spontaneous
  Country: EU (occurrence: EU)
  Receive Date: 20250206
  Receipt Date: 20250803
  Transmission Date: 20251020
  Serious: Yes (Hospitalization)
  Sender: ALEXION PHARMACEUTICALS
  Company Number: None

PATIENT
  Age: 84 Year
  Sex: Female

DRUGS (9)
  1. DAPAGLIFLOZIN [Suspect]
     Active Substance: DAPAGLIFLOZIN
     Dosage: 1-0-0
     Dates: start: 20241211, end: 20241227
  2. PANTOPRAZOLE [Concomitant]
     Active Substance: PANTOPRAZOLE
     Dosage: 1-0-0
     Dates: start: 20241211, end: 20250103
  3. METOCLOPRAMIDE [Concomitant]
     Active Substance: METOCLOPRAMIDE
  4. Regulax [Concomitant]
  5. ELIQUIS [Concomitant]
     Active Substance: APIXABAN
  6. Novodigal [Concomitant]
     Dosage: 1-0-0
     Dates: start: 20241211, end: 20250103
  7. FOLIC ACID [Concomitant]
     Active Substance: FOLIC ACID
     Dosage: 1-0-0
     Dates: start: 20241216, end: 20250103
  8. TORSEMIDE [Concomitant]
     Active Substance: TORSEMIDE
     Dosage: 1-0-0
     Dates: start: 20241218, end: 20241224
  9. TORSEMIDE [Concomitant]
     Active Substance: TORSEMIDE

REACTIONS (4)
  - Urticaria [Unknown]
  - Rash macular [Unknown]
  - Purulence [Unknown]
  - Skin weeping [Unknown]

NARRATIVE: CASE EVENT DATE: 20241227
